FAERS Safety Report 11704666 (Version 1)
Quarter: 2015Q4

REPORT INFORMATION
  Report Type: Report from Study
  Country: AU (occurrence: AU)
  Receive Date: 20151106
  Receipt Date: 20151106
  Transmission Date: 20160304
  Serious: Yes (Life-Threatening, Hospitalization)
  Sender: FDA-Public Use
  Company Number: PHHO2011AU10115

PATIENT
  Age: 58 Year
  Sex: Female
  Weight: 106.5 kg

DRUGS (1)
  1. LBH589 [Suspect]
     Active Substance: PANOBINOSTAT
     Indication: NON-SMALL CELL LUNG CANCER
     Dosage: 20 MG, UNK
     Route: 048
     Dates: start: 20110502

REACTIONS (5)
  - Gastritis [Recovered/Resolved]
  - Febrile neutropenia [Recovered/Resolved]
  - Lymphopenia [Recovered/Resolved]
  - Hypokalaemia [Recovered/Resolved]
  - Radiation oesophagitis [Recovered/Resolved]

NARRATIVE: CASE EVENT DATE: 20110613
